FAERS Safety Report 17221917 (Version 1)
Quarter: 2020Q1

REPORT INFORMATION
  Report Type: Report from Study
  Country: US (occurrence: US)
  Receive Date: 20200101
  Receipt Date: 20200101
  Transmission Date: 20200409
  Serious: Yes (Death, Other)
  Sender: FDA-Public Use
  Company Number: US-ROCHE-1893563

PATIENT

DRUGS (6)
  1. CYCLOPHOSPHAMIDE. [Suspect]
     Active Substance: CYCLOPHOSPHAMIDE
     Indication: DIFFUSE LARGE B-CELL LYMPHOMA
     Route: 042
  2. PREDNISONE. [Suspect]
     Active Substance: PREDNISONE
     Indication: DIFFUSE LARGE B-CELL LYMPHOMA
     Dosage: ORALLY PRIOR TO ANTIBODY INFUSION ON DAY 1 ORALLY ON DAYS 2 TO 5
     Route: 048
  3. RITUXIMAB. [Suspect]
     Active Substance: RITUXIMAB
     Indication: DIFFUSE LARGE B-CELL LYMPHOMA
     Route: 042
  4. DOXORUBICIN [Suspect]
     Active Substance: DOXORUBICIN
     Indication: DIFFUSE LARGE B-CELL LYMPHOMA
     Route: 042
  5. VINCRISTINE [Suspect]
     Active Substance: VINCRISTINE
     Indication: DIFFUSE LARGE B-CELL LYMPHOMA
     Dosage: MAXIMUM 2.0 MG
     Route: 042
  6. RITUXIMAB. [Suspect]
     Active Substance: RITUXIMAB
     Indication: DIFFUSE LARGE B-CELL LYMPHOMA
     Route: 042

REACTIONS (19)
  - Leukopenia [Unknown]
  - Vomiting [Unknown]
  - Neutrophil count decreased [Unknown]
  - Alanine aminotransferase increased [Unknown]
  - Hyperuricaemia [Unknown]
  - Cardiac arrest [Fatal]
  - Diarrhoea [Unknown]
  - Nausea [Unknown]
  - Thrombocytopenia [Unknown]
  - Septic shock [Fatal]
  - Pancytopenia [Fatal]
  - Febrile neutropenia [Unknown]
  - Sepsis [Unknown]
  - Neutropenia [Unknown]
  - Hyperglycaemia [Unknown]
  - White blood cell count decreased [Unknown]
  - Pneumonia [Fatal]
  - Anaemia [Unknown]
  - Platelet count decreased [Unknown]
